FAERS Safety Report 25594859 (Version 3)
Quarter: 2025Q3

REPORT INFORMATION
  Report Type: Spontaneous
  Country: US (occurrence: US)
  Receive Date: 20250723
  Receipt Date: 20250801
  Transmission Date: 20251020
  Serious: Yes (Other)
  Sender: NOVARTIS
  Company Number: US-002147023-NVSC2025US112741

PATIENT
  Sex: Female

DRUGS (1)
  1. VOTRIENT [Suspect]
     Active Substance: PAZOPANIB HYDROCHLORIDE
     Indication: Maternal exposure via partner during pregnancy
     Dosage: 200 MG (DAILY)
     Route: 065

REACTIONS (2)
  - Foetal disorder [Unknown]
  - Maternal exposure via partner during pregnancy [Unknown]
